FAERS Safety Report 6414921-1 (Version None)
Quarter: 2009Q4

REPORT INFORMATION
  Report Type: 
  Country: None (occurrence: None)
  Receive Date: 20091026
  Receipt Date: 20090319
  Transmission Date: 20100525
  Serious: No
  Sender: FDA-Public Use
  Company Number: US-ABBOTT-09P-163-0563672-00

PATIENT
  Sex: Female
  Weight: 95.34 kg

DRUGS (2)
  1. LUPRON DEPOT [Suspect]
     Indication: ABDOMINAL PAIN
     Dosage: 1 EVERY MONTH FOR 6 MONTHS
     Dates: start: 20090101
  2. LUPRON DEPOT [Suspect]
     Indication: ENDOMETRIOSIS

REACTIONS (3)
  - HEART RATE INCREASED [None]
  - HOT FLUSH [None]
  - INSOMNIA [None]
